FAERS Safety Report 25521810 (Version 1)
Quarter: 2025Q3

REPORT INFORMATION
  Report Type: Spontaneous
  Country: US (occurrence: US)
  Receive Date: 20250706
  Receipt Date: 20250706
  Transmission Date: 20251020
  Serious: No
  Sender: SANOFI AVENTIS
  Company Number: US-SA-2025SA184535

PATIENT
  Sex: Male

DRUGS (1)
  1. DUPIXENT [Suspect]
     Active Substance: DUPILUMAB
     Indication: Eczema
     Dosage: 200 MG, Q4W
     Route: 058
     Dates: start: 20250506

REACTIONS (8)
  - Eyelid discolouration [Recovered/Resolved]
  - Eyelid rash [Recovered/Resolved]
  - Dry skin [Recovered/Resolved]
  - Eyelid exfoliation [Recovered/Resolved]
  - Rash erythematous [Unknown]
  - Condition aggravated [Unknown]
  - Rash pruritic [Unknown]
  - Condition aggravated [Unknown]
